FAERS Safety Report 8202274-8 (Version None)
Quarter: 2012Q1

REPORT INFORMATION
  Report Type: 
  Country: None (occurrence: None)
  Receive Date: 20120308
  Receipt Date: 20120227
  Transmission Date: 20120608
  Serious: Yes (Hospitalization, Other)
  Sender: FDA-Public Use
  Company Number: TPA2012A01075

PATIENT
  Age: 68 Year
  Sex: Male
  Weight: 98.8842 kg

DRUGS (2)
  1. ACTOS [Suspect]
     Indication: TYPE 2 DIABETES MELLITUS
     Dosage: 30 MG, 1 IN 1 D, PER ORAL
     Route: 048
     Dates: start: 20101117, end: 20120223
  2. METFORMIN HCL [Concomitant]

REACTIONS (3)
  - BLADDER CANCER [None]
  - ABDOMINAL PAIN [None]
  - CARDIAC FAILURE CONGESTIVE [None]
